FAERS Safety Report 23126938 (Version 2)
Quarter: 2024Q1

REPORT INFORMATION
  Report Type: Spontaneous
  Country: HR (occurrence: HR)
  Receive Date: 20231030
  Receipt Date: 20240208
  Transmission Date: 20240409
  Serious: Yes (Other)
  Sender: FDA-Public Use
  Company Number: HR-JNJFOC-20231032911

PATIENT
  Age: 63 Year
  Sex: Male

DRUGS (28)
  1. CYCLOPHOSPHAMIDE [Suspect]
     Active Substance: CYCLOPHOSPHAMIDE
     Indication: Light chain disease
     Dosage: UNK (1 TIME AS A PART OF KD+ PACE REGIMEN)
     Route: 065
     Dates: start: 202303
  2. CYCLOPHOSPHAMIDE [Suspect]
     Active Substance: CYCLOPHOSPHAMIDE
     Indication: Plasma cell myeloma
     Dosage: UNK (5 TIMES AS A PART OF VCD REGIMEN)
     Route: 065
     Dates: start: 202203, end: 202205
  3. CARFILZOMIB [Suspect]
     Active Substance: CARFILZOMIB
     Indication: Plasma cell myeloma
     Dosage: UNK (1 TIME AS A PART OF KD+PACE REGIMEN)
     Route: 065
     Dates: start: 202303
  4. CARFILZOMIB [Suspect]
     Active Substance: CARFILZOMIB
     Indication: Light chain disease
     Dosage: UNK (3 TIMES, AS A PART OF KD+MP REGIMEN)
     Route: 065
     Dates: start: 202304, end: 202306
  5. CISPLATIN [Suspect]
     Active Substance: CISPLATIN
     Indication: Plasma cell myeloma
     Dosage: UNK (1 TIME AS A PART OF KD+PACE REGIMEN)
     Route: 065
     Dates: start: 202303
  6. CISPLATIN [Suspect]
     Active Substance: CISPLATIN
     Indication: Light chain disease
  7. DEXAMETHASONE [Suspect]
     Active Substance: DEXAMETHASONE
     Dosage: UNK (1 TIME AS A PART OF KD+PACE REGIMEN)
     Route: 065
     Dates: start: 202303
  8. DEXAMETHASONE [Suspect]
     Active Substance: DEXAMETHASONE
     Dosage: UNK (3 TIMES AS A PART OF VAD+ IXAZOMIB REGIMEN)
     Route: 065
     Dates: start: 202306, end: 202308
  9. DEXAMETHASONE [Suspect]
     Active Substance: DEXAMETHASONE
     Dosage: UNK (3 TIMES, AS A PART OF KD+MP REGIMEN)
     Route: 065
     Dates: start: 202304, end: 202306
  10. DEXAMETHASONE [Suspect]
     Active Substance: DEXAMETHASONE
     Indication: Light chain disease
     Dosage: UNK (5 TIMES AS A PART OF DRD REGIMEN)
     Route: 065
     Dates: start: 202208, end: 202302
  11. DEXAMETHASONE [Suspect]
     Active Substance: DEXAMETHASONE
     Indication: Plasma cell myeloma
     Dosage: UNK (5 TIMES AS A PART OF VCD REGIMEN)
     Route: 065
     Dates: start: 202203, end: 202205
  12. DOXORUBICIN HYDROCHLORIDE [Suspect]
     Active Substance: DOXORUBICIN HYDROCHLORIDE
     Indication: Plasma cell myeloma
     Dosage: UNK
     Route: 065
  13. DOXORUBICIN HYDROCHLORIDE [Suspect]
     Active Substance: DOXORUBICIN HYDROCHLORIDE
     Indication: Light chain disease
  14. DARZALEX [Suspect]
     Active Substance: DARATUMUMAB
     Indication: Plasma cell myeloma
     Dosage: UNK (5 TIMES AS A PART OF DRD REGIMEN)
     Route: 065
     Dates: start: 202208, end: 202302
  15. DARZALEX [Suspect]
     Active Substance: DARATUMUMAB
     Indication: Light chain disease
  16. ETOPOSIDE [Suspect]
     Active Substance: ETOPOSIDE
     Indication: Plasma cell myeloma
     Dosage: UNK
     Route: 065
  17. ETOPOSIDE [Suspect]
     Active Substance: ETOPOSIDE
     Indication: Light chain disease
  18. IXAZOMIB [Suspect]
     Active Substance: IXAZOMIB
     Indication: Plasma cell myeloma
     Dosage: UNK (3 TIMES AS A PART OF VAD+ IXAZOMIB REGIMEN)
     Route: 065
     Dates: start: 202306, end: 202308
  19. IXAZOMIB [Suspect]
     Active Substance: IXAZOMIB
     Indication: Light chain disease
  20. LENALIDOMIDE [Suspect]
     Active Substance: LENALIDOMIDE
     Indication: Plasma cell myeloma
     Dosage: UNK (5 TIMES AS A PART OF DRD REGIMEN)
     Route: 065
     Dates: start: 202208, end: 202302
  21. LENALIDOMIDE [Suspect]
     Active Substance: LENALIDOMIDE
     Indication: Light chain disease
  22. MELPHALAN [Suspect]
     Active Substance: MELPHALAN
     Indication: Product used for unknown indication
     Dosage: UNK
     Route: 065
  23. PREDNISONE [Suspect]
     Active Substance: PREDNISONE
     Indication: Plasma cell myeloma
     Dosage: UNK (3 TIMES, AS A PART OF KD+MP REGIMEN)
     Route: 065
     Dates: start: 202304, end: 202306
  24. PREDNISONE [Suspect]
     Active Substance: PREDNISONE
     Indication: Light chain disease
  25. VELCADE [Suspect]
     Active Substance: BORTEZOMIB
     Indication: Plasma cell myeloma
     Dosage: UNK (5 TIMES AS A PART OF VCD REGIMEN)
     Route: 065
     Dates: start: 202203, end: 202205
  26. VELCADE [Suspect]
     Active Substance: BORTEZOMIB
     Indication: Light chain disease
  27. VINCRISTINE [Suspect]
     Active Substance: VINCRISTINE
     Indication: Plasma cell myeloma
     Dosage: UNK (3 TIMES AS A PART OF VAD+ IXAZOMIB REGIMEN)
     Route: 065
     Dates: start: 202306, end: 202308
  28. VINCRISTINE [Suspect]
     Active Substance: VINCRISTINE
     Indication: Light chain disease

REACTIONS (4)
  - Febrile neutropenia [Unknown]
  - Light chain disease [Unknown]
  - Plasma cell myeloma [Unknown]
  - Therapy partial responder [Unknown]

NARRATIVE: CASE EVENT DATE: 20220101
